FAERS Safety Report 16275621 (Version 2)
Quarter: 2019Q2

REPORT INFORMATION
  Report Type: Report from Study
  Country: US (occurrence: US)
  Receive Date: 20190504
  Receipt Date: 20190521
  Transmission Date: 20190711
  Serious: Yes (Hospitalization)
  Sender: FDA-Public Use
  Company Number: PHEH2019US018573

PATIENT
  Sex: Female

DRUGS (1)
  1. ENTRESTO [Suspect]
     Active Substance: SACUBITRIL\VALSARTAN
     Indication: PRODUCT USED FOR UNKNOWN INDICATION
     Route: 048

REACTIONS (9)
  - Dehydration [Unknown]
  - Diarrhoea [Unknown]
  - Eating disorder [Unknown]
  - Blood pressure abnormal [Unknown]
  - Heart rate irregular [Unknown]
  - Kidney infection [Unknown]
  - Cough [Unknown]
  - Blood potassium increased [Unknown]
  - Pyrexia [Unknown]
